FAERS Safety Report 7619781-9 (Version None)
Quarter: 2011Q3

REPORT INFORMATION
  Report Type: 
  Country: None (occurrence: None)
  Receive Date: 20110719
  Receipt Date: 20110711
  Transmission Date: 20111222
  Serious: Yes (Hospitalization)
  Sender: FDA-Public Use
  Company Number: US-CUBIST-2010S1001629

PATIENT
  Age: 83 Year
  Sex: Male
  Weight: 115.6 kg

DRUGS (12)
  1. METFORMIN HCL [Concomitant]
     Indication: DIABETES MELLITUS
  2. CUBICIN [Suspect]
     Indication: SKIN INFECTION
     Route: 042
     Dates: start: 20101012, end: 20101025
  3. ADVAIR DISKUS 100/50 [Concomitant]
     Indication: ASTHMA
  4. ALTACE [Concomitant]
     Indication: HYPERTENSION
  5. TOPROL-XL [Concomitant]
     Indication: HYPERTENSION
  6. ZYVOX [Concomitant]
     Indication: PRODUCT USED FOR UNKNOWN INDICATION
  7. CUBICIN [Suspect]
  8. SPIRIVA [Concomitant]
     Indication: ASTHMA
  9. MAXZIDE [Concomitant]
     Indication: HYPERTENSION
  10. PLAVIX [Concomitant]
     Indication: PRODUCT USED FOR UNKNOWN INDICATION
  11. CELEBREX [Concomitant]
     Indication: PAIN
  12. VICODIN [Concomitant]
     Indication: PAIN

REACTIONS (3)
  - BLOOD CREATINE PHOSPHOKINASE INCREASED [None]
  - HYPERSENSITIVITY [None]
  - RENAL FAILURE ACUTE [None]
